FAERS Safety Report 18591245 (Version 1)
Quarter: 2020Q4

REPORT INFORMATION
  Report Type: Spontaneous
  Country: KW (occurrence: KW)
  Receive Date: 20201208
  Receipt Date: 20201208
  Transmission Date: 20210114
  Serious: Yes (Hospitalization, Other)
  Sender: FDA-Public Use
  Company Number: KW-B.I. PHARMACEUTICALS,INC./RIDGEFIELD-2020-BI-066568

PATIENT
  Age: 84 Year
  Sex: Female

DRUGS (2)
  1. INSULIN [Concomitant]
     Active Substance: INSULIN NOS
     Indication: DIABETES MELLITUS
     Route: 065
  2. PRADAXA [Suspect]
     Active Substance: DABIGATRAN ETEXILATE MESYLATE
     Indication: PRODUCT USED FOR UNKNOWN INDICATION
     Route: 065

REACTIONS (19)
  - Respiratory failure [Unknown]
  - Pericardial effusion [Unknown]
  - Multiple organ dysfunction syndrome [Unknown]
  - Pericardial haemorrhage [Unknown]
  - Abdominal pain upper [Unknown]
  - Oedema peripheral [Unknown]
  - Metabolic acidosis [Unknown]
  - Somnolence [Unknown]
  - Mental impairment [Unknown]
  - Sleep apnoea syndrome [Unknown]
  - Oliguria [Unknown]
  - Coagulopathy [Unknown]
  - Pulmonary oedema [Unknown]
  - Asthenia [Unknown]
  - Lethargy [Unknown]
  - Renal injury [Unknown]
  - Leukocytosis [Unknown]
  - Renal impairment [Unknown]
  - Transaminases increased [Unknown]
